FAERS Safety Report 19379167 (Version 5)
Quarter: 2022Q2

REPORT INFORMATION
  Report Type: Spontaneous
  Country: JP (occurrence: JP)
  Receive Date: 20210607
  Receipt Date: 20220516
  Transmission Date: 20220721
  Serious: Yes (Death, Hospitalization, Other)
  Sender: FDA-Public Use
  Company Number: JP-ONO-2021JP013197

PATIENT
  Age: 79 Year
  Sex: Male
  Weight: 46.9 kg

DRUGS (11)
  1. PARSABIV [Suspect]
     Active Substance: ETELCALCETIDE HYDROCHLORIDE
     Indication: Hyperparathyroidism secondary
     Dosage: 5 MILLIGRAM, Q84H
     Route: 010
     Dates: start: 20200328, end: 20210508
  2. PARSABIV [Suspect]
     Active Substance: ETELCALCETIDE HYDROCHLORIDE
     Dosage: 5 MILLIGRAM, QWK
     Route: 010
     Dates: start: 20210515, end: 20211009
  3. CALCITRIOL [Concomitant]
     Active Substance: CALCITRIOL
     Dosage: 1 UG, Q56H
     Route: 065
     Dates: end: 20200521
  4. CALCITRIOL [Concomitant]
     Active Substance: CALCITRIOL
     Dosage: 0.5 MICROGRAM, Q56H
     Route: 065
     Dates: start: 20200522
  5. FOSRENOL [Concomitant]
     Active Substance: LANTHANUM CARBONATE
     Dosage: 750 MG, EVERYDAY
     Route: 048
     Dates: end: 20220301
  6. CALCIUM POLYSTYRENE SULFONATE [Concomitant]
     Active Substance: CALCIUM POLYSTYRENE SULFONATE
     Dosage: 75 G, EVERYDAY
     Route: 048
     Dates: end: 20220301
  7. CALCIUM CARBONATE [Concomitant]
     Active Substance: CALCIUM CARBONATE
     Dosage: 1500 MG, EVERYDAY
     Route: 065
     Dates: end: 20220301
  8. BIXALOMER [Concomitant]
     Active Substance: BIXALOMER
     Dosage: 750 MG, EVERYDAY
     Route: 048
     Dates: end: 20220301
  9. RENAGEL [Concomitant]
     Active Substance: SEVELAMER HYDROCHLORIDE
     Dosage: 750 MILLIGRAM, QD
     Route: 065
     Dates: end: 20220301
  10. ERYTHROPOIETIN [Concomitant]
     Active Substance: ERYTHROPOIETIN
     Dosage: 4500 INTERNATIONAL UNIT, QWK
     Route: 065
     Dates: end: 20210107
  11. ERYTHROPOIETIN [Concomitant]
     Active Substance: ERYTHROPOIETIN
     Dosage: 3000 INTERNATIONAL UNIT, QWK
     Route: 065
     Dates: start: 20211102, end: 20211204

REACTIONS (5)
  - Cardiac failure [Fatal]
  - Cardiac failure congestive [Recovered/Resolved]
  - Angina unstable [Recovered/Resolved]
  - Diarrhoea [Recovered/Resolved]
  - Contusion [Recovered/Resolved]

NARRATIVE: CASE EVENT DATE: 20210318
